FAERS Safety Report 6333330-7 (Version None)
Quarter: 2009Q3

REPORT INFORMATION
  Report Type: 
  Country: None (occurrence: None)
  Receive Date: 20090828
  Receipt Date: 20090819
  Transmission Date: 20100115
  Serious: Yes (Hospitalization, Disabling, Other)
  Sender: FDA-Public Use
  Company Number: DE-ABBOTT-09P-062-0591899-00

PATIENT
  Sex: Male
  Weight: 70 kg

DRUGS (7)
  1. HUMIRA [Suspect]
     Indication: RHEUMATOID ARTHRITIS
     Route: 058
     Dates: start: 20060216, end: 20090101
  2. DECORTIN [Concomitant]
     Indication: RHEUMATOID ARTHRITIS
     Route: 048
  3. ASPIRIN [Concomitant]
     Indication: HYPERTENSION
  4. ASPIRIN [Concomitant]
     Indication: MYOCARDIAL INFARCTION
  5. CLOPIDOGREL [Concomitant]
     Indication: MYOCARDIAL INFARCTION
  6. SIMVASTATIN [Concomitant]
     Indication: MYOCARDIAL INFARCTION
  7. BETA. RECEPTOR INHIBITORS [Concomitant]
     Indication: HYPERTENSION

REACTIONS (9)
  - ASTHENIA [None]
  - BLADDER CANCER [None]
  - MACULAR DEGENERATION [None]
  - METASTASES TO BONE [None]
  - METASTASES TO LUNG [None]
  - RHEUMATOID ARTHRITIS [None]
  - URINARY BLADDER POLYP [None]
  - URINARY INCONTINENCE [None]
  - URINARY RETENTION [None]
